FAERS Safety Report 12744282 (Version 2)
Quarter: 2016Q4

REPORT INFORMATION
  Report Type: Spontaneous
  Country: US (occurrence: US)
  Receive Date: 20160914
  Receipt Date: 20161222
  Transmission Date: 20170207
  Serious: Yes (Other)
  Sender: FDA-Public Use
  Company Number: US-TEVA-692133USA

PATIENT
  Age: 58 Year
  Sex: Male

DRUGS (1)
  1. COPAXONE [Suspect]
     Active Substance: GLATIRAMER ACETATE
     Indication: MULTIPLE SCLEROSIS
     Dosage: 20 MILLIGRAM DAILY;
     Route: 058
     Dates: start: 20140612

REACTIONS (3)
  - Multiple sclerosis relapse [Unknown]
  - Adverse event [Unknown]
  - Fall [Unknown]

NARRATIVE: CASE EVENT DATE: 201608
